FAERS Safety Report 9166348 (Version 1)
Quarter: 2013Q1

REPORT INFORMATION
  Report Type: Spontaneous
  Country: US (occurrence: US)
  Receive Date: 20130315
  Receipt Date: 20130315
  Transmission Date: 20140127
  Serious: Yes (Other)
  Sender: FDA-Public Use
  Company Number: US-ASTRAZENECA-2013SE15719

PATIENT
  Sex: Male

DRUGS (2)
  1. CRESTOR [Suspect]
     Route: 048
  2. OTHER DRUGS [Concomitant]

REACTIONS (1)
  - Rhabdomyolysis [Unknown]
